FAERS Safety Report 12907266 (Version 1)
Quarter: 2016Q4

REPORT INFORMATION
  Report Type: Spontaneous
  Country: US (occurrence: US)
  Receive Date: 20161103
  Receipt Date: 20161103
  Transmission Date: 20170207
  Serious: Yes (Other)
  Sender: FDA-Public Use
  Company Number: US-TEVA-709767USA

PATIENT
  Sex: Female

DRUGS (2)
  1. QVAR [Suspect]
     Active Substance: BECLOMETHASONE DIPROPIONATE
     Route: 065
  2. PROAIR HFA [Suspect]
     Active Substance: ALBUTEROL SULFATE
     Route: 065

REACTIONS (5)
  - PFAPA syndrome [Unknown]
  - Arnold-Chiari malformation [Unknown]
  - Klippel-Feil syndrome [Unknown]
  - Ehlers-Danlos syndrome [Unknown]
  - Food allergy [Unknown]
